FAERS Safety Report 4817233-2 (Version None)
Quarter: 2005Q4

REPORT INFORMATION
  Report Type: 
  Country: None (occurrence: None)
  Receive Date: 20051018
  Receipt Date: 20050120
  Transmission Date: 20060501
  Serious: Yes (Other)
  Sender: FDA-Public Use
  Company Number: PHEH2004US13315

PATIENT
  Age: 80 Year
  Sex: Female
  Weight: 40.8 kg

DRUGS (6)
  1. ZOMETA [Suspect]
     Indication: MULTIPLE MYELOMA
     Dosage: 4 MG, QMO, INTRAVENOUS
     Route: 042
     Dates: start: 20030320, end: 20040107
  2. PAMIDRONATE DISODIUM [Suspect]
     Indication: MULTIPLE MYELOMA
     Dosage: 90 MG, INTRAVENOUS; 90 MG, INTRAVENOUS
     Route: 042
     Dates: start: 20000602, end: 20020917
  3. PAMIDRONATE DISODIUM [Suspect]
     Indication: MULTIPLE MYELOMA
     Dosage: 90 MG, INTRAVENOUS; 90 MG, INTRAVENOUS
     Route: 042
     Dates: start: 20040113, end: 20041029
  4. ALKERAN [Suspect]
     Indication: MULTIPLE MYELOMA
     Dosage: 8MG/DAY X 4 DAYS, Q MO
     Dates: start: 19990601, end: 20000601
  5. PREDNISONE [Suspect]
     Indication: MULTIPLE MYELOMA
     Dosage: 50 MG BID X 4 DAYS, Q MO; 50 MG BID X 4 DAYS, Q MO
     Dates: start: 19990601, end: 20000601
  6. PREDNISONE [Suspect]
     Indication: MULTIPLE MYELOMA
     Dosage: 50 MG BID X 4 DAYS, Q MO; 50 MG BID X 4 DAYS, Q MO
     Dates: start: 20010701, end: 20030801

REACTIONS (15)
  - ACTINOMYCOSIS [None]
  - BONE DEBRIDEMENT [None]
  - EXCESSIVE GRANULATION TISSUE [None]
  - FISTULA [None]
  - GINGIVAL INFECTION [None]
  - GINGIVAL ULCERATION [None]
  - GINGIVITIS [None]
  - IMPAIRED HEALING [None]
  - LOCAL SWELLING [None]
  - ORAL PAIN [None]
  - OSTEOMYELITIS [None]
  - OSTEONECROSIS [None]
  - TOOTH ABSCESS [None]
  - TOOTH EXTRACTION [None]
  - WOUND DEBRIDEMENT [None]
